FAERS Safety Report 8654709 (Version 2)
Quarter: 2013Q3

REPORT INFORMATION
  Report Type: Spontaneous
  Country: US (occurrence: US)
  Receive Date: 20120709
  Receipt Date: 20130912
  Transmission Date: 20140515
  Serious: Yes (Other)
  Sender: FDA-Public Use
  Company Number: US-PFIZER INC-2012161127

PATIENT
  Age: 40 Year
  Sex: Female
  Weight: 73 kg

DRUGS (2)
  1. CHANTIX [Suspect]
     Dosage: 0.5 MG (STARTING MONTH PACK), UNK
     Route: 048
     Dates: start: 20090914, end: 20091114
  2. CHANTIX [Suspect]
     Dosage: 1 MG (CONTINUING MONTH PACK), ONE TABLET, UNK
     Route: 048
     Dates: start: 20090914, end: 20091114

REACTIONS (1)
  - Convulsion [Unknown]
